FAERS Safety Report 25298742 (Version 2)
Quarter: 2025Q2

REPORT INFORMATION
  Report Type: Spontaneous
  Country: US (occurrence: US)
  Receive Date: 20250512
  Receipt Date: 20250618
  Transmission Date: 20250716
  Serious: Yes (Other)
  Sender: CSL BEHRING
  Company Number: US-BEH-2025203958

PATIENT
  Sex: Male

DRUGS (29)
  1. HIZENTRA [Suspect]
     Active Substance: HUMAN IMMUNOGLOBULIN G
     Indication: Hypogammaglobulinaemia
     Dosage: 10 G,(50ML) QW
     Route: 058
     Dates: start: 20241212
  2. ACYCLOVIR [Concomitant]
     Active Substance: ACYCLOVIR
  3. AMITRIPTYLINE [Concomitant]
     Active Substance: AMITRIPTYLINE
  4. AMITRIPTYLINE [Concomitant]
     Active Substance: AMITRIPTYLINE
  5. ATENOLOL [Concomitant]
     Active Substance: ATENOLOL
  6. ATOMOXETINE [Concomitant]
     Active Substance: ATOMOXETINE
  7. CLONIDINE [Concomitant]
     Active Substance: CLONIDINE
  8. CROMOLYN SODIUM [Concomitant]
     Active Substance: CROMOLYN SODIUM
  9. CYPROHEPTADINE [Concomitant]
     Active Substance: CYPROHEPTADINE
  10. ERYPED [Concomitant]
     Active Substance: ERYTHROMYCIN ETHYLSUCCINATE
  11. ERYTHROMYCIN [Concomitant]
     Active Substance: ERYTHROMYCIN
  12. FAMOTIDINE [Concomitant]
     Active Substance: FAMOTIDINE
  13. FLUOCINOLONE ACETONIDE [Concomitant]
     Active Substance: FLUOCINOLONE ACETONIDE
     Route: 058
  14. FLUTICASONE [Concomitant]
     Active Substance: FLUTICASONE
  15. HYOSYNE [Concomitant]
     Active Substance: HYOSCYAMINE SULFATE
  16. IBUPROFEN [Concomitant]
     Active Substance: IBUPROFEN
  17. INVEGA [Concomitant]
     Active Substance: PALIPERIDONE
  18. Levocarnitin [Concomitant]
  19. LORATADINE [Concomitant]
     Active Substance: LORATADINE
  20. NEXIUM [Concomitant]
     Active Substance: ESOMEPRAZOLE MAGNESIUM
  21. OMEPRAZOLE [Concomitant]
     Active Substance: OMEPRAZOLE
  22. OMEPRAZOLE [Concomitant]
     Active Substance: OMEPRAZOLE
  23. ONDANSETRON [Concomitant]
     Active Substance: ONDANSETRON
  24. PALIPERIDONE [Concomitant]
     Active Substance: PALIPERIDONE
  25. QVAR REDIHALER [Concomitant]
     Active Substance: BECLOMETHASONE DIPROPIONATE
  26. QVAR REDIHALER [Concomitant]
     Active Substance: BECLOMETHASONE DIPROPIONATE
  27. SODIUM CHLORIDE [Concomitant]
     Active Substance: SODIUM CHLORIDE
  28. STRATTERA [Concomitant]
     Active Substance: ATOMOXETINE HYDROCHLORIDE
  29. TRAZODONE [Concomitant]
     Active Substance: TRAZODONE HYDROCHLORIDE

REACTIONS (4)
  - Drug ineffective [Unknown]
  - Infection [Unknown]
  - Insurance issue [Unknown]
  - Therapy change [Unknown]
